FAERS Safety Report 8586876-5 (Version None)
Quarter: 2012Q3

REPORT INFORMATION
  Report Type: 
  Country: None (occurrence: None)
  Receive Date: 20120810
  Receipt Date: 20120727
  Transmission Date: 20120928
  Serious: Yes (Other)
  Sender: FDA-Public Use
  Company Number: CHPA2012US016962

PATIENT
  Sex: Female

DRUGS (1)
  1. NODOZ [Suspect]
     Dosage: UNK, UNK
     Route: 048

REACTIONS (3)
  - INTENTIONAL DRUG MISUSE [None]
  - OVERDOSE [None]
  - INCORRECT DOSE ADMINISTERED [None]
